FAERS Safety Report 23944783 (Version 3)
Quarter: 2024Q2

REPORT INFORMATION
  Report Type: Report from Study
  Country: US (occurrence: US)
  Receive Date: 20240606
  Receipt Date: 20240627
  Transmission Date: 20240716
  Serious: Yes (Other)
  Sender: FDA-Public Use
  Company Number: US-TAKEDA-2024TUS054664

PATIENT
  Sex: Male

DRUGS (5)
  1. TEDUGLUTIDE [Suspect]
     Active Substance: TEDUGLUTIDE
     Indication: Short-bowel syndrome
     Dosage: 0.36 MILLILITER, QD
     Route: 058
     Dates: start: 202405
  2. TEDUGLUTIDE [Suspect]
     Active Substance: TEDUGLUTIDE
     Indication: Short-bowel syndrome
     Dosage: 0.36 MILLILITER, QD
     Route: 058
     Dates: start: 202405
  3. TEDUGLUTIDE [Suspect]
     Active Substance: TEDUGLUTIDE
     Indication: Short-bowel syndrome
     Dosage: 0.36 MILLILITER, QD
     Route: 058
     Dates: start: 202405
  4. TEDUGLUTIDE [Suspect]
     Active Substance: TEDUGLUTIDE
     Indication: Short-bowel syndrome
     Dosage: 0.36 MILLILITER, QD
     Route: 058
     Dates: start: 202405
  5. STELARA [Concomitant]
     Active Substance: USTEKINUMAB
     Dosage: UNK
     Route: 065

REACTIONS (6)
  - Anal squamous cell carcinoma [Unknown]
  - Joint swelling [Unknown]
  - Injection site bruising [Unknown]
  - Nausea [Recovered/Resolved]
  - Abdominal pain lower [Recovered/Resolved]
  - Decreased appetite [Unknown]
